FAERS Safety Report 10448003 (Version 2)
Quarter: 2015Q2

REPORT INFORMATION
  Report Type: Spontaneous
  Country: US (occurrence: US)
  Receive Date: 20140911
  Receipt Date: 20150424
  Transmission Date: 20150821
  Serious: Yes (Hospitalization, Other)
  Sender: FDA-Public Use
  Company Number: US-BAYER-2014-133893

PATIENT
  Age: 47 Year
  Sex: Female
  Weight: 72.56 kg

DRUGS (6)
  1. CYTOMEL [Concomitant]
     Active Substance: LIOTHYRONINE SODIUM
     Dosage: 25 MCG
     Dates: start: 201105, end: 201307
  2. ULTRAM [Concomitant]
     Active Substance: TRAMADOL HYDROCHLORIDE
  3. VITAMIN C [Concomitant]
     Active Substance: ASCORBIC ACID
     Dosage: UNK
     Dates: start: 1990
  4. BEYAZ [Suspect]
     Active Substance: DROSPIRENONE\ETHINYL ESTRADIOL\LEVOMEFOLATE CALCIUM
     Dosage: UNK
     Dates: start: 201104, end: 201206
  5. SYNTHROID [Concomitant]
     Active Substance: LEVOTHYROXINE SODIUM
     Dosage: 112 MCG/ML, UNK
     Dates: start: 1996, end: 201312
  6. DEHYDROEPIANDROSTERONE [Concomitant]

REACTIONS (16)
  - General physical health deterioration [None]
  - Muscle tightness [None]
  - Hyperhidrosis [None]
  - Dyspnoea [None]
  - Deep vein thrombosis [None]
  - Anxiety [None]
  - Chest pain [None]
  - Pulmonary infarction [None]
  - Pain [None]
  - Injury [None]
  - Emotional distress [None]
  - Hypoaesthesia [None]
  - Pulmonary embolism [None]
  - Cough [None]
  - Fear of disease [None]
  - Crying [None]

NARRATIVE: CASE EVENT DATE: 201206
